FAERS Safety Report 4573051-4 (Version None)
Quarter: 2005Q1

REPORT INFORMATION
  Report Type: 
  Country: None (occurrence: None)
  Receive Date: 20050204
  Receipt Date: 20050117
  Transmission Date: 20050727
  Serious: Yes (Death, Hospitalization)
  Sender: FDA-Public Use
  Company Number: SHI_00007_2005

PATIENT
  Age: 84 Year
  Sex: Female

DRUGS (19)
  1. CEDAX [Suspect]
     Indication: ESCHERICHIA BACTERAEMIA
     Dosage: PO
     Route: 048
     Dates: start: 19990924, end: 19990927
  2. CEDAX [Suspect]
     Indication: PNEUMONIA
     Dosage: PO
     Route: 048
     Dates: start: 19990924, end: 19990927
  3. CEDAX [Suspect]
     Indication: URINARY TRACT INFECTION
     Dosage: PO
     Route: 048
     Dates: start: 19990924, end: 19990927
  4. ZINACEF [Suspect]
     Indication: ESCHERICHIA BACTERAEMIA
     Dosage: 0.75 G QD
     Dates: start: 19990927, end: 19990929
  5. ZINACEF [Suspect]
     Indication: PNEUMONIA
     Dosage: 0.75 G QD
     Dates: start: 19990927, end: 19990929
  6. ZINACEF [Suspect]
     Indication: URINARY TRACT INFECTION
     Dosage: 0.75 G QD
     Dates: start: 19990927, end: 19990929
  7. NETILMICIN SULFATE [Suspect]
     Indication: URINARY TRACT INFECTION
     Dosage: 200 MG ONCE IV
     Route: 042
     Dates: start: 19990901, end: 19990901
  8. NITROMEX [Concomitant]
  9. ACETAMINOPHEN [Concomitant]
  10. BETAPRED [Concomitant]
  11. ZYLORIC TABLETS [Concomitant]
  12. PRIMPERAN INJ [Concomitant]
  13. IMPUGAN [Concomitant]
  14. SPIRONOLAKTON ^ACO^ [Concomitant]
  15. DEXTROPROPOXYPHENE  TABLETS [Concomitant]
  16. IMDUR [Concomitant]
  17. FLUNITRAZEPAM [Concomitant]
  18. MIXTARD HUMAN 70/30 [Concomitant]
  19. LOSEC [Concomitant]

REACTIONS (12)
  - ACUTE PRERENAL FAILURE [None]
  - CARDIAC FAILURE [None]
  - CARDIOMEGALY [None]
  - CLOSTRIDIAL INFECTION [None]
  - CLOSTRIDIUM COLITIS [None]
  - EXANTHEM [None]
  - HEPATIC CIRRHOSIS [None]
  - METASTASES TO CENTRAL NERVOUS SYSTEM [None]
  - METASTASES TO LIVER [None]
  - NEPHRITIS INTERSTITIAL [None]
  - PRURITUS [None]
  - RENAL TUBULAR NECROSIS [None]
